FAERS Safety Report 5488075-2 (Version None)
Quarter: 2007Q4

REPORT INFORMATION
  Report Type: 
  Country: None (occurrence: None)
  Receive Date: 20071017
  Receipt Date: 20071008
  Transmission Date: 20080405
  Serious: Yes (Other)
  Sender: FDA-Public Use
  Company Number: SE-JNJFOC-20071002073

PATIENT
  Sex: Female

DRUGS (1)
  1. TOPAMAX [Suspect]
     Indication: WEIGHT LOSS DIET

REACTIONS (3)
  - HEADACHE [None]
  - OPTIC DISC HAEMORRHAGE [None]
  - PAPILLOEDEMA [None]
